FAERS Safety Report 4371802-5 (Version None)
Quarter: 2004Q2

REPORT INFORMATION
  Report Type: 
  Country: None (occurrence: None)
  Receive Date: 20040601
  Receipt Date: 20040513
  Transmission Date: 20050107
  Serious: Yes (Hospitalization)
  Sender: FDA-Public Use
  Company Number: DSA_24448_2004

PATIENT
  Age: 69 Year
  Sex: Male

DRUGS (10)
  1. CARDIZEM [Suspect]
     Dosage: 20 MG Q DAY PO
     Route: 048
     Dates: start: 20040511, end: 20040513
  2. HEPARIN [Suspect]
     Dosage: 3800 U ONCE IV
     Route: 042
     Dates: start: 20040511, end: 20040511
  3. ATENOLOL [Concomitant]
  4. PLAVIX [Concomitant]
  5. ZOCOR [Concomitant]
  6. ASPIRIN [Concomitant]
  7. PAROXETINE HCL [Concomitant]
  8. HYDROCHLOROTHIAZIDE [Concomitant]
  9. PREDNISONE [Concomitant]
  10. RANITIDINE [Concomitant]

REACTIONS (7)
  - ASTHENIA [None]
  - BRADYCARDIA [None]
  - CHEST PAIN [None]
  - CONSTIPATION [None]
  - HYPOTENSION [None]
  - HYPOVOLAEMIA [None]
  - PAIN EXACERBATED [None]
